FAERS Safety Report 8961287 (Version 2)
Quarter: 2013Q2

REPORT INFORMATION
  Report Type: Spontaneous
  Country: US (occurrence: US)
  Receive Date: 20121213
  Receipt Date: 20130410
  Transmission Date: 20140414
  Serious: Yes (Death, Hospitalization)
  Sender: FDA-Public Use
  Company Number: US-BAYER-2012-127974

PATIENT
  Age: 35 Year
  Sex: Female

DRUGS (12)
  1. YAZ [Suspect]
     Dosage: UNK;DAILY
     Route: 048
  2. GIANVI [Suspect]
  3. EPINEPHRINE [Concomitant]
  4. ATROPINE [Concomitant]
  5. BICARBONAT [Concomitant]
  6. DEXTROSE [Concomitant]
  7. TOPIRAMATE [Concomitant]
  8. OMEPRAZOLE [Concomitant]
  9. CLONIDINE [Concomitant]
  10. ZIPRASIDONE [Concomitant]
  11. IBUPROFEN [Concomitant]
  12. TRAZODONE [Concomitant]

REACTIONS (3)
  - Cardiac arrest [Fatal]
  - Pulmonary embolism [Fatal]
  - Deep vein thrombosis [Fatal]
